FAERS Safety Report 24970952 (Version 2)
Quarter: 2025Q2

REPORT INFORMATION
  Report Type: Spontaneous
  Country: IT (occurrence: IT)
  Receive Date: 20250214
  Receipt Date: 20250402
  Transmission Date: 20250716
  Serious: No
  Sender: TOLMAR
  Company Number: IT-RECGATEWAY-2025000576

PATIENT

DRUGS (1)
  1. ELIGARD [Suspect]
     Active Substance: LEUPROLIDE ACETATE
     Indication: Product used for unknown indication
     Dates: start: 20240430

REACTIONS (2)
  - Intercepted product preparation error [Unknown]
  - Product reconstitution quality issue [Unknown]

NARRATIVE: CASE EVENT DATE: 20240430
